FAERS Safety Report 9792302 (Version 3)
Quarter: 2014Q1

REPORT INFORMATION
  Report Type: Spontaneous
  Country: FR (occurrence: FR)
  Receive Date: 20140102
  Receipt Date: 20140116
  Transmission Date: 20141002
  Serious: Yes (Hospitalization)
  Sender: FDA-Public Use
  Company Number: FR-SA-2013SA135597

PATIENT
  Age: 69 Year
  Sex: Female

DRUGS (11)
  1. TAVANIC [Suspect]
     Indication: ANTIBIOTIC THERAPY
     Route: 048
     Dates: start: 20131020, end: 20131108
  2. RIFADINE [Suspect]
     Indication: ANTIBIOTIC THERAPY
     Route: 048
     Dates: start: 20131020, end: 20131108
  3. VANCOMYCINE [Suspect]
     Indication: ANTIBIOTIC THERAPY
     Route: 042
     Dates: start: 20131017, end: 20131019
  4. LEVOTHYROX [Concomitant]
     Indication: HYPOTHYROIDISM
     Route: 048
  5. LEVOTHYROX [Concomitant]
     Indication: HYPOTHYROIDISM
     Route: 048
  6. PIASCLEDINE [Concomitant]
     Route: 048
  7. DOLIPRANE [Concomitant]
     Dosage: DOSE: 16 DF/DAY, (2 DF, 8 IN 1 DAY)
     Route: 048
  8. DOLIPRANE [Concomitant]
  9. CRESTOR [Concomitant]
     Route: 048
  10. CETIRIZINE [Concomitant]
     Route: 048
  11. LOVENOX [Concomitant]
     Route: 058

REACTIONS (4)
  - Cholestasis [Recovered/Resolved]
  - Aspartate aminotransferase increased [Recovered/Resolved]
  - Gamma-glutamyltransferase increased [Recovered/Resolved]
  - Alanine aminotransferase increased [Recovered/Resolved]
